FAERS Safety Report 4751377-9 (Version None)
Quarter: 2005Q3

REPORT INFORMATION
  Report Type: 
  Country: None (occurrence: None)
  Receive Date: 20050822
  Receipt Date: 20050808
  Transmission Date: 20060218
  Serious: No
  Sender: FDA-Public Use
  Company Number: HQWYE795409AUG05

PATIENT
  Age: 80 Year
  Sex: Female
  Weight: 61.74 kg

DRUGS (3)
  1. INDERAL LA [Suspect]
     Indication: ESSENTIAL TREMOR
     Dosage: SEE IMAGE
     Route: 048
     Dates: start: 20050701, end: 20050101
  2. INDERAL LA [Suspect]
     Indication: ESSENTIAL TREMOR
     Dosage: SEE IMAGE
     Route: 048
     Dates: start: 20050607, end: 20050701
  3. ACTONEL [Concomitant]

REACTIONS (6)
  - DEAFNESS [None]
  - FLUSHING [None]
  - HYPOACUSIS [None]
  - NEOPLASM [None]
  - PAIN [None]
  - PHARYNGOLARYNGEAL PAIN [None]
